FAERS Safety Report 9764822 (Version 1)
Quarter: 2013Q4

REPORT INFORMATION
  Report Type: Spontaneous
  Country: US (occurrence: US)
  Receive Date: 20131217
  Receipt Date: 20131217
  Transmission Date: 20140711
  Serious: No
  Sender: FDA-Public Use
  Company Number: US-BIOGENIDEC-2013BI110340

PATIENT
  Age: 54 Year
  Sex: Female

DRUGS (2)
  1. TECFIDERA [Suspect]
     Indication: RELAPSING-REMITTING MULTIPLE SCLEROSIS
  2. TECFIDERA [Suspect]
     Indication: RELAPSING-REMITTING MULTIPLE SCLEROSIS
     Dates: start: 20130927, end: 20131011

REACTIONS (8)
  - Hypersensitivity [Recovered/Resolved]
  - Stress [Not Recovered/Not Resolved]
  - Abdominal distension [Recovered/Resolved]
  - Multiple sclerosis relapse [Not Recovered/Not Resolved]
  - Flushing [Recovered/Resolved]
  - Gastrointestinal disorder [Recovered/Resolved]
  - Burning sensation [Recovered/Resolved]
  - Rash generalised [Recovered/Resolved]
